FAERS Safety Report 13899765 (Version 1)
Quarter: 2017Q3

REPORT INFORMATION
  Report Type: Report from Study
  Country: US (occurrence: US)
  Receive Date: 20170824
  Receipt Date: 20170824
  Transmission Date: 20171127
  Serious: Yes (Other)
  Sender: FDA-Public Use
  Company Number: US-AUROBINDO-AUR-APL-2017-39392

PATIENT
  Age: 65 Year
  Sex: Female

DRUGS (1)
  1. LIDOCAINE. [Suspect]
     Active Substance: LIDOCAINE
     Indication: CARDIAC FAILURE CONGESTIVE
     Dosage: 0.5 MG/MINUTE.
     Route: 042

REACTIONS (7)
  - Dizziness [Recovered/Resolved]
  - Blood creatinine increased [Recovered/Resolved]
  - Acute kidney injury [Recovered/Resolved]
  - Aspartate aminotransferase increased [Recovered/Resolved]
  - Drug level increased [Recovered/Resolved]
  - Alanine aminotransferase increased [Recovered/Resolved]
  - Sepsis [Recovered/Resolved]
